FAERS Safety Report 21747742 (Version 2)
Quarter: 2023Q1

REPORT INFORMATION
  Report Type: Report from Study
  Country: IT (occurrence: IT)
  Receive Date: 20221219
  Receipt Date: 20230215
  Transmission Date: 20230417
  Serious: Yes (Other)
  Sender: FDA-Public Use
  Company Number: IT-UCBSA-2022070816

PATIENT
  Age: 85 Year
  Sex: Female

DRUGS (2)
  1. NEUPRO [Suspect]
     Active Substance: ROTIGOTINE
     Indication: Parkinson^s disease
     Dosage: 4 MILLIGRAM, ONCE DAILY (QD)
     Route: 062
     Dates: start: 202111
  2. CARBIDOPA\MELEVODOPA [Concomitant]
     Active Substance: CARBIDOPA\MELEVODOPA
     Indication: Parkinson^s disease
     Dosage: UNK

REACTIONS (10)
  - Movement disorder [Unknown]
  - Haematochezia [Unknown]
  - Malaise [Unknown]
  - Condition aggravated [Unknown]
  - Arthritis [Unknown]
  - COVID-19 [Unknown]
  - Eating disorder [Unknown]
  - Faeces discoloured [Unknown]
  - Drug ineffective [Unknown]
  - Inappropriate schedule of product administration [Unknown]

NARRATIVE: CASE EVENT DATE: 20220101
